FAERS Safety Report 6857968-3 (Version None)
Quarter: 2010Q3

REPORT INFORMATION
  Report Type: 
  Country: None (occurrence: None)
  Receive Date: 20100714
  Receipt Date: 20100702
  Transmission Date: 20110219
  Serious: Yes (Hospitalization, Other)
  Sender: FDA-Public Use
  Company Number: 2010JP003869

PATIENT
  Age: 58 Year
  Sex: Male

DRUGS (5)
  1. PROGRAF [Suspect]
     Indication: RENAL TRANSPLANT
  2. BASILIXIMAB (BASILIXIMAB) FORMULATION UNKNOWN [Concomitant]
  3. STEROID FORMULATION UNKNOWN [Concomitant]
  4. MYCOPHENOLATE MOFETIL [Concomitant]
  5. GANCICLOVIR (GANCICLOVIR) FORMULATION UNKNOWN [Concomitant]

REACTIONS (6)
  - CYTOMEGALOVIRUS VIRAEMIA [None]
  - DIVERTICULAR PERFORATION [None]
  - DIVERTICULITIS [None]
  - FAILURE TO ANASTOMOSE [None]
  - PERITONITIS [None]
  - PYREXIA [None]
